FAERS Safety Report 25624811 (Version 3)
Quarter: 2025Q3

REPORT INFORMATION
  Report Type: Spontaneous
  Country: US (occurrence: US)
  Receive Date: 20250731
  Receipt Date: 20250916
  Transmission Date: 20251020
  Serious: No
  Sender: SANOFI AVENTIS
  Company Number: US-SA-2025SA220277

PATIENT
  Age: 7 Year
  Sex: Female
  Weight: 35.91 kg

DRUGS (13)
  1. NEXVIAZYME [Suspect]
     Active Substance: AVALGLUCOSIDASE ALFA-NGPT
     Indication: Glycogen storage disease type II
     Dosage: 1400 MG, QOW
     Route: 042
     Dates: start: 2023, end: 2025
  2. NEXVIAZYME [Suspect]
     Active Substance: AVALGLUCOSIDASE ALFA-NGPT
     Dosage: 1400 MG, QOW
     Route: 042
     Dates: start: 2025
  3. BACTERIOSTATIC WATER [Concomitant]
     Active Substance: WATER
  4. FAMOTIDINE [Concomitant]
     Active Substance: FAMOTIDINE
  5. DEXTROSE [Concomitant]
     Active Substance: DEXTROSE MONOHYDRATE
  6. EPINEPHRINE [Concomitant]
     Active Substance: EPINEPHRINE
  7. DIPHENHYDRAMINE [Concomitant]
     Active Substance: DIPHENHYDRAMINE
  8. METHYLPREDNISOLONE SODIUM SUCCINATE [Concomitant]
     Active Substance: METHYLPREDNISOLONE SODIUM SUCCINATE
  9. HEPARIN [Concomitant]
     Active Substance: HEPARIN SODIUM
  10. STERILE WATER [Concomitant]
     Active Substance: WATER
  11. SODIUM CHLORIDE [Concomitant]
     Active Substance: SODIUM CHLORIDE
  12. SODIUM CHLORIDE [Concomitant]
     Active Substance: SODIUM CHLORIDE
  13. DEXTROSE [Concomitant]
     Active Substance: DEXTROSE MONOHYDRATE

REACTIONS (7)
  - Muscular weakness [Unknown]
  - Gait disturbance [Unknown]
  - Motor developmental delay [Unknown]
  - Speech disorder [Unknown]
  - Mobility decreased [Unknown]
  - Poor venous access [Unknown]
  - Weight decreased [Unknown]

NARRATIVE: CASE EVENT DATE: 20250101
